FAERS Safety Report 5901697-7 (Version None)
Quarter: 2008Q3

REPORT INFORMATION
  Report Type: 
  Country: None (occurrence: None)
  Receive Date: 20080929
  Receipt Date: 20080917
  Transmission Date: 20090109
  Serious: Yes (Other)
  Sender: FDA-Public Use
  Company Number: A0749520B

PATIENT
  Sex: Male

DRUGS (1)
  1. IMITREX [Suspect]
     Indication: MIGRAINE

REACTIONS (3)
  - DRUG EXPOSURE DURING PREGNANCY [None]
  - FOETAL HEART RATE DECREASED [None]
  - PREMATURE BABY [None]
